FAERS Safety Report 9722708 (Version 2)
Quarter: 2013Q4

REPORT INFORMATION
  Report Type: Spontaneous
  Country: FR (occurrence: FR)
  Receive Date: 20131202
  Receipt Date: 20131202
  Transmission Date: 20140711
  Serious: Yes (Death)
  Sender: FDA-Public Use
  Company Number: FR-MERCK-1311FRA011676

PATIENT
  Age: 53 Year
  Sex: Female
  Weight: 60 kg

DRUGS (13)
  1. VICTRELIS [Suspect]
     Indication: HEPATITIS C
     Route: 048
  2. VIRAFERONPEG [Suspect]
     Indication: HEPATITIS C
     Dosage: 80 MICROGRAM, QW
     Route: 058
     Dates: start: 20110512
  3. REBETOL [Suspect]
     Indication: HEPATITIS C
     Dosage: 200 MG, 5 TIMES PER DAY
     Route: 048
     Dates: start: 20110512
  4. AERIUS [Concomitant]
     Indication: PRURITUS
     Dosage: 1 DF, QD
     Dates: start: 20110818
  5. DOLIPRANE [Concomitant]
     Dosage: 2 DF, UNK
  6. DEXERYL CREAM [Concomitant]
     Indication: PROPHYLAXIS
     Dosage: 1 DF, QD
     Dates: start: 2010
  7. TOCO [Concomitant]
     Dosage: 2 DF, QD
  8. PARIET [Concomitant]
     Indication: GASTROOESOPHAGEAL REFLUX PROPHYLAXIS
     Dosage: 1 DF, QD
     Dates: start: 20100509
  9. ALDACTONE TABLETS [Concomitant]
     Indication: PROPHYLAXIS
     Dosage: 1 DF, QD
     Dates: start: 20110117
  10. LASILIX [Concomitant]
     Indication: PROPHYLAXIS
     Dosage: 1 DF, QD
     Dates: start: 20110117
  11. LEVOCARNIL [Concomitant]
     Indication: MYALGIA
     Dosage: 2 DF, QD
     Dates: start: 20101108
  12. SPECIAFOLDINE [Concomitant]
     Indication: ANAEMIA PROPHYLAXIS
     Dosage: 2 DF, QD
     Dates: start: 201009
  13. QUESTRAN [Concomitant]
     Indication: PRURITUS
     Dosage: 3 DF, QD
     Dates: start: 20110908

REACTIONS (2)
  - Lung infection [Fatal]
  - Respiratory distress [Fatal]
